FAERS Safety Report 5166377-7 (Version None)
Quarter: 2006Q4

REPORT INFORMATION
  Report Type: 
  Country: None (occurrence: None)
  Receive Date: 20061129
  Receipt Date: 20061120
  Transmission Date: 20070319
  Serious: Yes (Hospitalization)
  Sender: FDA-Public Use
  Company Number: TPA2006A02079

PATIENT
  Age: 78 Year
  Sex: Male
  Weight: 73.4827 kg

DRUGS (11)
  1. ACTOS [Suspect]
     Indication: DIABETES MELLITUS NON-INSULIN-DEPENDENT
     Dosage: 30 MG, 1 IN 1 D, PER ORAL
     Route: 048
     Dates: start: 20001120
  2. ISOSORBIDE (ISOSORBIDE) [Concomitant]
  3. COREG [Concomitant]
  4. LIPITOR [Concomitant]
  5. PLAVIX [Concomitant]
  6. CELEBREX [Concomitant]
  7. QUINAPRIL HCL [Concomitant]
  8. NEXIUM [Concomitant]
  9. DITEX (ALL OTHER THERAPEUTIC PRODUCTS) [Concomitant]
  10. FEXOFENADINE HCL [Concomitant]
  11. SINGULAIR [Concomitant]

REACTIONS (3)
  - CARDIAC FAILURE CONGESTIVE [None]
  - PERIPHERAL VASCULAR DISORDER [None]
  - POOR PERIPHERAL CIRCULATION [None]
